FAERS Safety Report 19562131 (Version 1)
Quarter: 2021Q3

REPORT INFORMATION
  Report Type: Spontaneous
  Country: US (occurrence: US)
  Receive Date: 20210716
  Receipt Date: 20210716
  Transmission Date: 20211014
  Serious: No
  Sender: FDA-Public Use
  Company Number: US-ASTRAZENECA-2021A539501

PATIENT
  Age: 18848 Day
  Sex: Female
  Weight: 98.9 kg

DRUGS (3)
  1. BYDUREON BCISE [Suspect]
     Active Substance: EXENATIDE
     Indication: GLYCOSYLATED HAEMOGLOBIN DECREASED
     Route: 058
     Dates: start: 20210610
  2. BYETTA [Concomitant]
     Active Substance: EXENATIDE
     Indication: DIABETES MELLITUS
     Dates: start: 2008
  3. BYDUREON [Suspect]
     Active Substance: EXENATIDE
     Indication: GLYCOSYLATED HAEMOGLOBIN DECREASED
     Route: 058
     Dates: start: 2019, end: 20210603

REACTIONS (7)
  - Device malfunction [Unknown]
  - Injection site pain [Unknown]
  - Device use issue [Unknown]
  - Nervousness [Unknown]
  - Product use issue [Unknown]
  - Injection site haemorrhage [Unknown]
  - Medical device site induration [Unknown]

NARRATIVE: CASE EVENT DATE: 20210610
